FAERS Safety Report 5472918-2 (Version None)
Quarter: 2007Q4

REPORT INFORMATION
  Report Type: 
  Country: None (occurrence: None)
  Receive Date: 20071001
  Receipt Date: 20070925
  Transmission Date: 20080405
  Serious: Yes (Hospitalization)
  Sender: FDA-Public Use
  Company Number: B0488684A

PATIENT
  Age: 80 Year
  Sex: Male

DRUGS (10)
  1. ARIXTRA [Suspect]
     Indication: DEEP VEIN THROMBOSIS
     Dosage: 7500MCG WEEKLY
     Route: 058
     Dates: start: 20070301, end: 20070705
  2. SERETIDE [Concomitant]
  3. BRONCHODUAL [Concomitant]
  4. VERAPAMIL [Concomitant]
  5. PRAVASTATIN [Concomitant]
  6. HYPERIUM [Concomitant]
  7. INDAPAMIDE [Concomitant]
  8. OMEPRAZOLE [Concomitant]
  9. PERINDOPRIL ERBUMINE [Concomitant]
  10. SOLU-MEDROL [Concomitant]

REACTIONS (4)
  - FALL [None]
  - HAEMATOMA [None]
  - SKIN ULCER [None]
  - TRAUMATIC HAEMATOMA [None]
